FAERS Safety Report 24820010 (Version 4)
Quarter: 2025Q2

REPORT INFORMATION
  Report Type: Spontaneous
  Country: US (occurrence: US)
  Receive Date: 20250108
  Receipt Date: 20250514
  Transmission Date: 20250716
  Serious: No
  Sender: JOHNSON AND JOHNSON
  Company Number: US-JNJFOC-20241206377

PATIENT
  Sex: Female

DRUGS (1)
  1. XARELTO [Suspect]
     Active Substance: RIVAROXABAN
     Indication: Product used for unknown indication
     Route: 048

REACTIONS (7)
  - Product quality issue [Unknown]
  - Gait disturbance [Unknown]
  - Pain [Unknown]
  - Product use issue [Unknown]
  - Pain in extremity [Unknown]
  - Product dose omission issue [Unknown]
  - Wrong technique in product usage process [Unknown]
